FAERS Safety Report 5613341-7 (Version None)
Quarter: 2008Q1

REPORT INFORMATION
  Report Type: 
  Country: None (occurrence: None)
  Receive Date: 20080129
  Receipt Date: 20080122
  Transmission Date: 20080703
  Serious: Yes (Hospitalization, Disabling)
  Sender: FDA-Public Use
  Company Number: 2008SP000346

PATIENT
  Age: 21 Year
  Sex: Female
  Weight: 36 kg

DRUGS (3)
  1. PEG-INTERFERON ALFA-2B)  (PEGINTERFERON ALFA-2B) [Suspect]
     Indication: HEPATITIS C
     Dosage: 60 MCG;QW;SC, 50 MCG;QW;SC
     Route: 058
     Dates: start: 20070811, end: 20070914
  2. PEG-INTERFERON ALFA-2B)  (PEGINTERFERON ALFA-2B) [Suspect]
     Indication: HEPATITIS C
     Dosage: 60 MCG;QW;SC, 50 MCG;QW;SC
     Route: 058
     Dates: start: 20070921, end: 20080104
  3. REBETOL [Suspect]
     Indication: HEPATITIS C
     Dosage: 600 MG;QD;PO
     Route: 048
     Dates: start: 20070811, end: 20080106

REACTIONS (2)
  - CARDIO-RESPIRATORY ARREST [None]
  - ENCEPHALOPATHY [None]
